FAERS Safety Report 5628154-X (Version None)
Quarter: 2008Q1

REPORT INFORMATION
  Report Type: 
  Country: None (occurrence: None)
  Receive Date: 20080215
  Receipt Date: 20080207
  Transmission Date: 20080703
  Serious: Yes (Hospitalization)
  Sender: FDA-Public Use
  Company Number: DE-ELI_LILLY_AND_COMPANY-DE200802001606

PATIENT
  Sex: Male
  Weight: 68 kg

DRUGS (5)
  1. ALIMTA [Suspect]
     Indication: BRONCHIAL CARCINOMA
     Dosage: 900 MG, UNKNOWN
     Route: 042
     Dates: start: 20080122
  2. FOLSAN [Concomitant]
     Indication: PROPHYLAXIS
     Dosage: UNK, UNKNOWN
     Dates: start: 20080114
  3. DEXAMETHASONE TAB [Concomitant]
     Indication: PROPHYLAXIS
     Dosage: UNK, UNKNOWN
     Dates: start: 20080121
  4. FUROSEMIDE [Concomitant]
     Dosage: UNK, UNKNOWN
     Dates: start: 20080114
  5. METRONIDAZOLE HCL [Concomitant]
     Dosage: UNK, UNKNOWN
     Dates: start: 20080114

REACTIONS (1)
  - PERICARDIAL EFFUSION [None]
